FAERS Safety Report 12590957 (Version 2)
Quarter: 2016Q3

REPORT INFORMATION
  Report Type: Spontaneous
  Country: US (occurrence: US)
  Receive Date: 20160726
  Receipt Date: 20160726
  Transmission Date: 20161109
  Serious: No
  Sender: FDA-Public Use
  Company Number: US-UNITED THERAPEUTICS-UNT-2015-015242

PATIENT
  Age: 57 Year
  Sex: Male
  Weight: 99.77 kg

DRUGS (4)
  1. ADCIRCA [Concomitant]
     Active Substance: TADALAFIL
     Indication: PRODUCT USED FOR UNKNOWN INDICATION
  2. OPSUMIT [Concomitant]
     Active Substance: MACITENTAN
     Indication: PRODUCT USED FOR UNKNOWN INDICATION
  3. OXYCODONE [Suspect]
     Active Substance: OXYCODONE
     Indication: PRODUCT USED FOR UNKNOWN INDICATION
     Route: 065
  4. REMODULIN [Suspect]
     Active Substance: TREPROSTINIL
     Indication: PULMONARY ARTERIAL HYPERTENSION
     Dosage: 0.0425 ?G/KG/MIN, CONTINUING
     Route: 058
     Dates: start: 20130328

REACTIONS (4)
  - Infusion site erythema [Unknown]
  - Drug hypersensitivity [Unknown]
  - Infusion site discolouration [Unknown]
  - Infusion site oedema [Unknown]

NARRATIVE: CASE EVENT DATE: 201511
